FAERS Safety Report 5370987-1 (Version None)
Quarter: 2007Q2

REPORT INFORMATION
  Report Type: 
  Country: None (occurrence: None)
  Receive Date: 20070626
  Receipt Date: 20070615
  Transmission Date: 20071010
  Serious: Yes (Disabling, Other)
  Sender: FDA-Public Use
  Company Number: DE-PFIZER INC-2007041122

PATIENT
  Age: 65 Year
  Sex: Male

DRUGS (2)
  1. REVATIO [Suspect]
     Indication: PULMONARY HYPERTENSION
     Route: 048
     Dates: start: 20061219, end: 20070101
  2. TRACLEER [Concomitant]

REACTIONS (2)
  - MACULAR DEGENERATION [None]
  - VISUAL DISTURBANCE [None]
